FAERS Safety Report 7231312-4 (Version None)
Quarter: 2011Q1

REPORT INFORMATION
  Report Type: 
  Country: None (occurrence: None)
  Receive Date: 20110118
  Receipt Date: 20110106
  Transmission Date: 20110831
  Serious: Yes (Other)
  Sender: FDA-Public Use
  Company Number: PHHY2011IT01758

PATIENT
  Age: 76 Year
  Sex: Male

DRUGS (2)
  1. FLUOROURACIL [Suspect]
  2. FOLINIC ACID [Suspect]

REACTIONS (3)
  - SKIN LESION [None]
  - PAIN [None]
  - LEUKOCYTOCLASTIC VASCULITIS [None]
